FAERS Safety Report 25432092 (Version 1)
Quarter: 2025Q2

REPORT INFORMATION
  Report Type: Spontaneous
  Country: FR (occurrence: FR)
  Receive Date: 20250613
  Receipt Date: 20250613
  Transmission Date: 20250716
  Serious: Yes (Other)
  Sender: RANBAXY
  Company Number: FR-SUN PHARMACEUTICAL INDUSTRIES LTD-2025RR-511517

PATIENT
  Age: 22 Year
  Sex: Female

DRUGS (10)
  1. PAROXETINE [Suspect]
     Active Substance: PAROXETINE
     Indication: Prader-Willi syndrome
     Dosage: 20 MILLIGRAM, DAILY
     Route: 065
  2. LEVOMEPROMAZINE [Suspect]
     Active Substance: LEVOMEPROMAZINE
     Indication: Prader-Willi syndrome
     Dosage: 50 MILLIGRAM, DAILY
     Route: 065
  3. ALPRAZOLAM [Suspect]
     Active Substance: ALPRAZOLAM
     Indication: Prader-Willi syndrome
     Dosage: 0.125 MILLIGRAM, DAILY
     Route: 065
  4. DIAZEPAM [Suspect]
     Active Substance: DIAZEPAM
     Indication: Prader-Willi syndrome
     Route: 030
  5. HALOPERIDOL [Suspect]
     Active Substance: HALOPERIDOL
     Indication: Prader-Willi syndrome
     Route: 030
  6. ESTRADIOL [Suspect]
     Active Substance: ESTRADIOL
     Indication: Prader-Willi syndrome
     Dosage: 1 MILLIGRAM, DAILY
     Route: 065
  7. LEVOTHYROXINE [Suspect]
     Active Substance: LEVOTHYROXINE
     Indication: Hypothyroidism
     Dosage: 75 MICROGRAM, DAILY
     Route: 065
  8. TOPIRAMATE [Suspect]
     Active Substance: TOPIRAMATE
     Indication: Prader-Willi syndrome
     Dosage: 50 MILLIGRAM, DAILY
     Route: 065
  9. PROGESTERONE [Suspect]
     Active Substance: PROGESTERONE
     Indication: Prader-Willi syndrome
     Dosage: 100 MILLIGRAM, DAILY
     Route: 065
  10. PALIPERIDONE [Suspect]
     Active Substance: PALIPERIDONE
     Indication: Prader-Willi syndrome
     Route: 030

REACTIONS (2)
  - Disease recurrence [Recovering/Resolving]
  - Depressed mood [Recovering/Resolving]
